FAERS Safety Report 6253100-8 (Version None)
Quarter: 2009Q3

REPORT INFORMATION
  Report Type: 
  Country: None (occurrence: None)
  Receive Date: 20090701
  Receipt Date: 20090622
  Transmission Date: 20100115
  Serious: Yes (Hospitalization, Other)
  Sender: FDA-Public Use
  Company Number: SE-JNJFOC-20090607742

PATIENT
  Age: 70 Year
  Sex: Male

DRUGS (7)
  1. REMICADE [Suspect]
     Indication: CROHN'S DISEASE
     Dosage: RECEIVED 2 INFUSION TOTAL
     Route: 042
  2. ASACOL [Concomitant]
     Dosage: GASTRO-RESISTANT TABLET
     Route: 048
  3. FUROSEMID [Concomitant]
     Dosage: TABLET
     Route: 048
  4. WARFARIN SODIUM [Concomitant]
     Dosage: TABLET
     Route: 048
  5. PREDNISOLONE [Concomitant]
     Dosage: TABLET
     Route: 048
  6. DIGOXIN [Concomitant]
     Dosage: TABLET
     Route: 048
  7. ATENOLOL [Concomitant]

REACTIONS (5)
  - CEREBROVASCULAR DISORDER [None]
  - OPTIC NEURITIS [None]
  - PYREXIA [None]
  - SINUSITIS [None]
  - VISUAL IMPAIRMENT [None]
